FAERS Safety Report 10263177 (Version 1)
Quarter: 2014Q2

REPORT INFORMATION
  Report Type: Report from Study
  Country: US (occurrence: US)
  Receive Date: 20140626
  Receipt Date: 20140626
  Transmission Date: 20141212
  Serious: No
  Sender: FDA-Public Use
  Company Number: US-MYLANLABS-2014S1004974

PATIENT
  Sex: Female

DRUGS (2)
  1. CLOZAPINE TABLETS [Suspect]
     Route: 048
     Dates: start: 20131119, end: 201402
  2. CLOZAPINE TABLETS [Suspect]
     Route: 048
     Dates: start: 20131119, end: 201402

REACTIONS (1)
  - Adverse event [Not Recovered/Not Resolved]
